FAERS Safety Report 24131608 (Version 1)
Quarter: 2024Q3

REPORT INFORMATION
  Report Type: Report from Study
  Country: US (occurrence: US)
  Receive Date: 20240724
  Receipt Date: 20240724
  Transmission Date: 20241017
  Serious: Yes (Other)
  Sender: PFIZER
  Company Number: US-PFIZER INC-PV202400094529

PATIENT
  Age: 39 Year
  Sex: Female

DRUGS (2)
  1. BRAFTOVI [Suspect]
     Active Substance: ENCORAFENIB
     Indication: Malignant melanoma
     Dosage: 450 MG, 1X/DAY
     Route: 048
  2. MEKTOVI [Suspect]
     Active Substance: BINIMETINIB
     Indication: Malignant melanoma
     Dosage: 45 MG, 2X/DAY (EVERY 12 HOURS)
     Route: 048

REACTIONS (11)
  - Uveitis [Unknown]
  - Thrombosis [Unknown]
  - Hypothyroidism [Unknown]
  - Anaemia [Unknown]
  - Heavy menstrual bleeding [Unknown]
  - Headache [Unknown]
  - Neuralgia [Unknown]
  - Back pain [Unknown]
  - Infertility female [Unknown]
  - Neoplasm progression [Unknown]
  - Pain [Unknown]
